FAERS Safety Report 5912375-2 (Version None)
Quarter: 2008Q4

REPORT INFORMATION
  Report Type: 
  Country: None (occurrence: None)
  Receive Date: 20081007
  Receipt Date: 20081007
  Transmission Date: 20090506
  Serious: No
  Sender: FDA-Public Use
  Company Number: None

PATIENT
  Age: 59 Year
  Sex: Female
  Weight: 65.7716 kg

DRUGS (2)
  1. FOSAMAX [Suspect]
     Indication: OSTEOPOROSIS
     Dosage: 1 TABLET WEEKLY
     Dates: start: 20030512, end: 20030526
  2. ACTONEL [Suspect]
     Indication: OSTEOPOROSIS
     Dosage: 1 TABLET WEEKLY
     Dates: start: 20031125, end: 20040407

REACTIONS (10)
  - BACK PAIN [None]
  - DEPRESSION [None]
  - DYSPEPSIA [None]
  - MASS [None]
  - MUSCLE SPASMS [None]
  - NO THERAPEUTIC RESPONSE [None]
  - OEDEMA PERIPHERAL [None]
  - OSTEOARTHRITIS [None]
  - PAIN IN EXTREMITY [None]
  - PLANTAR FASCIITIS [None]
